FAERS Safety Report 6431858-2 (Version None)
Quarter: 2009Q4

REPORT INFORMATION
  Report Type: 
  Country: None (occurrence: None)
  Receive Date: 20091108
  Receipt Date: 20091030
  Transmission Date: 20100525
  Serious: Yes (Other)
  Sender: FDA-Public Use
  Company Number: PHEH2009US11736

PATIENT
  Sex: Male
  Weight: 68 kg

DRUGS (14)
  1. EXJADE [Suspect]
     Indication: ACUTE LYMPHOCYTIC LEUKAEMIA (IN REMISSION)
     Dosage: 1500 MG DAILY
     Route: 048
     Dates: start: 20090101, end: 20090810
  2. EXJADE [Suspect]
     Indication: IRON OVERLOAD
     Dosage: 1500 MG DAILY
     Route: 048
     Dates: start: 20090812, end: 20090816
  3. EXJADE [Suspect]
     Dosage: 500 MG, QD
     Route: 048
     Dates: start: 20091027
  4. TOPROL-XL [Concomitant]
     Indication: HYPERTENSION
     Dosage: 25 MG, QHS
     Route: 048
     Dates: start: 20090115
  5. TOPROL-XL [Concomitant]
     Indication: ATRIAL FIBRILLATION
  6. PREVACID [Concomitant]
     Indication: DYSPEPSIA
     Dosage: 30 MG DAILY
     Route: 048
     Dates: start: 20080718, end: 20090813
  7. NEURONTIN [Concomitant]
     Indication: NEURALGIA
     Dosage: 800 MG, TID
     Dates: start: 20090308
  8. MERCAPTOPURINE [Concomitant]
     Indication: CHEMOTHERAPY
     Dosage: 150MG X4, 125 MG X3
     Route: 048
     Dates: start: 20090604
  9. METHOTREXATE [Concomitant]
     Indication: CHEMOTHERAPY
     Dosage: 37.5 WEEKLY
     Route: 048
     Dates: start: 20090604
  10. AMBIEN [Concomitant]
     Indication: INSOMNIA
     Dosage: 10 MG HS PRN
     Route: 048
     Dates: start: 20090730
  11. CYMBALTA [Concomitant]
     Indication: DEPRESSION
     Dosage: 30 MG Q AM
     Route: 048
     Dates: start: 20090422
  12. LITHIUM CARBONATE [Concomitant]
     Indication: BIPOLAR I DISORDER
     Dosage: 300 MG QOD, 480 MG QOD
     Route: 048
     Dates: start: 20090716
  13. LORTAB [Concomitant]
     Indication: PAIN
     Dosage: UNK
     Route: 048
     Dates: start: 20090317
  14. PRILOSEC [Concomitant]
     Dosage: 20 MG, QD
     Route: 048
     Dates: start: 20090813

REACTIONS (6)
  - DEAFNESS [None]
  - EAR PAIN [None]
  - HEADACHE [None]
  - HYPOACUSIS [None]
  - TINNITUS [None]
  - VISION BLURRED [None]
